FAERS Safety Report 12929980 (Version 1)
Quarter: 2016Q4

REPORT INFORMATION
  Report Type: Spontaneous
  Country: US (occurrence: US)
  Receive Date: 20161110
  Receipt Date: 20161110
  Transmission Date: 20170207
  Serious: No
  Sender: FDA-Public Use
  Company Number: None

PATIENT

DRUGS (1)
  1. LIDOCAINE HCL 2% AND EPINEPHRINE HOSPIRA [Suspect]
     Active Substance: EPINEPHRINE\LIDOCAINE HYDROCHLORIDE
     Dates: start: 20161102, end: 20161109

REACTIONS (2)
  - Anaesthetic complication [None]
  - Product quality issue [None]

NARRATIVE: CASE EVENT DATE: 20161109
